FAERS Safety Report 7052029-5 (Version None)
Quarter: 2010Q4

REPORT INFORMATION
  Report Type: 
  Country: None (occurrence: None)
  Receive Date: 20101019
  Receipt Date: 20101012
  Transmission Date: 20110411
  Serious: Yes (Hospitalization, Other)
  Sender: FDA-Public Use
  Company Number: US-US-EMD SERONO, INC.-7022072

PATIENT
  Sex: Female

DRUGS (1)
  1. REBIF [Suspect]
     Indication: PRODUCT USED FOR UNKNOWN INDICATION
     Route: 058
     Dates: start: 20081224

REACTIONS (5)
  - DRUG HYPERSENSITIVITY [None]
  - ERYTHEMA [None]
  - HAEMATOMA [None]
  - RASH MACULO-PAPULAR [None]
  - STAPHYLOCOCCAL INFECTION [None]
